FAERS Safety Report 6643324-X (Version None)
Quarter: 2010Q1

REPORT INFORMATION
  Report Type: 
  Country: None (occurrence: None)
  Receive Date: 20100319
  Receipt Date: 20100310
  Transmission Date: 20100710
  Serious: Yes (Hospitalization)
  Sender: FDA-Public Use
  Company Number: US-ABBOTT-10P-163-0631756-00

PATIENT
  Age: 19 Year
  Sex: Female
  Weight: 68.554 kg

DRUGS (13)
  1. VICODIN [Suspect]
     Indication: DRUG USE FOR UNKNOWN INDICATION
  2. DILANTIN-125 [Suspect]
     Indication: DRUG USE FOR UNKNOWN INDICATION
     Dates: start: 20091209, end: 20091221
  3. AMBIEN [Suspect]
     Indication: DRUG USE FOR UNKNOWN INDICATION
  4. VALIUM [Suspect]
     Indication: DRUG USE FOR UNKNOWN INDICATION
  5. TOPAMAX [Suspect]
     Indication: DRUG USE FOR UNKNOWN INDICATION
  6. LEXAPRO [Concomitant]
     Indication: DRUG USE FOR UNKNOWN INDICATION
  7. METFORMIN HYDROCHLORIDE [Concomitant]
     Indication: DRUG USE FOR UNKNOWN INDICATION
  8. DROSPIRENONE W/ESTRADIOL [Concomitant]
     Indication: DRUG USE FOR UNKNOWN INDICATION
  9. ALBUTEROL [Concomitant]
     Indication: DRUG USE FOR UNKNOWN INDICATION
  10. IBUPROFEN [Concomitant]
     Indication: DRUG USE FOR UNKNOWN INDICATION
  11. TRAZODONE HCL [Concomitant]
     Indication: DRUG USE FOR UNKNOWN INDICATION
  12. VISTARIL [Concomitant]
     Indication: DRUG USE FOR UNKNOWN INDICATION
  13. ABILIFY [Concomitant]
     Indication: DRUG USE FOR UNKNOWN INDICATION

REACTIONS (4)
  - AFFECTIVE DISORDER [None]
  - DRUG DEPENDENCE [None]
  - DRUG RASH WITH EOSINOPHILIA AND SYSTEMIC SYMPTOMS [None]
  - LIVER FUNCTION TEST ABNORMAL [None]
